FAERS Safety Report 8557702-5 (Version None)
Quarter: 2012Q3

REPORT INFORMATION
  Report Type: 
  Country: None (occurrence: None)
  Receive Date: 20120801
  Receipt Date: 20120726
  Transmission Date: 20120928
  Serious: Yes (Hospitalization)
  Sender: FDA-Public Use
  Company Number: US-PFIZER INC-2012181762

PATIENT
  Sex: Female

DRUGS (1)
  1. REVATIO [Suspect]
     Indication: CARDIAC DISORDER
     Dosage: UNK
     Dates: end: 20120101

REACTIONS (2)
  - DYSPNOEA [None]
  - MALAISE [None]
